FAERS Safety Report 16284944 (Version 1)
Quarter: 2019Q2

REPORT INFORMATION
  Report Type: Spontaneous
  Country: CO (occurrence: CO)
  Receive Date: 20190508
  Receipt Date: 20190508
  Transmission Date: 20190711
  Serious: Yes (Other)
  Sender: FDA-Public Use
  Company Number: CO-SA-2019SA120000

PATIENT
  Age: 73 Year
  Sex: Female

DRUGS (1)
  1. LANTUS [Suspect]
     Active Substance: INSULIN GLARGINE
     Dosage: 24 IU
     Route: 030
     Dates: start: 20190325, end: 20190417

REACTIONS (8)
  - Incorrect route of product administration [Unknown]
  - Blindness [Unknown]
  - Decreased appetite [Unknown]
  - Thirst [Unknown]
  - Dizziness [Unknown]
  - Expired product administered [Unknown]
  - Asthenia [Unknown]
  - Condition aggravated [Unknown]
